FAERS Safety Report 4481226-8 (Version None)
Quarter: 2004Q4

REPORT INFORMATION
  Report Type: 
  Country: None (occurrence: None)
  Receive Date: 20040923
  Receipt Date: 20040806
  Transmission Date: 20050328
  Serious: No
  Sender: FDA-Public Use
  Company Number: USA040157411

PATIENT
  Age: 78 Year
  Sex: Female
  Weight: 59 kg

DRUGS (3)
  1. FORTEO [Suspect]
     Indication: OSTEOPOROSIS
     Dosage: 20 UG DAY
     Dates: start: 20040105
  2. ESTROGEN NOS [Concomitant]
  3. CORTISONE [Concomitant]

REACTIONS (7)
  - ARTHRALGIA [None]
  - HEART RATE INCREASED [None]
  - HORMONE LEVEL ABNORMAL [None]
  - INJECTION SITE HAEMORRHAGE [None]
  - JOINT EFFUSION [None]
  - JOINT SWELLING [None]
  - VAGINAL HAEMORRHAGE [None]
